FAERS Safety Report 25637056 (Version 2)
Quarter: 2025Q3

REPORT INFORMATION
  Report Type: Spontaneous
  Country: US (occurrence: US)
  Receive Date: 20250804
  Receipt Date: 20250820
  Transmission Date: 20251020
  Serious: No
  Sender: ROCHE
  Company Number: US-ROCHE-10000347311

PATIENT
  Age: 23 Year
  Sex: Male

DRUGS (2)
  1. HEMLIBRA [Suspect]
     Active Substance: EMICIZUMAB-KXWH
     Indication: Factor VIII deficiency
     Dosage: 165MG(1.1ML), LOADING DOSE FOR FOUR WEEKS
     Route: 058
  2. HEMLIBRA [Suspect]
     Active Substance: EMICIZUMAB-KXWH
     Dosage: MAINTAINANCE DOSE
     Route: 058

REACTIONS (4)
  - Haemorrhage [Unknown]
  - Ear haemorrhage [Unknown]
  - Chest pain [Unknown]
  - Haemorrhage [Unknown]
